FAERS Safety Report 16026060 (Version 2)
Quarter: 2019Q1

REPORT INFORMATION
  Report Type: Spontaneous
  Country: GB (occurrence: GB)
  Receive Date: 20190302
  Receipt Date: 20190314
  Transmission Date: 20190418
  Serious: Yes (Other)
  Sender: FDA-Public Use
  Company Number: GB-AUROBINDO-08-AUR-04013

PATIENT

DRUGS (4)
  1. CHAMPIX [Suspect]
     Active Substance: VARENICLINE TARTRATE
     Dosage: 2 MILLIGRAM, ONCE A DAY
     Route: 048
     Dates: start: 20080109, end: 20080401
  2. CHAMPIX [Suspect]
     Active Substance: VARENICLINE TARTRATE
     Indication: SMOKING CESSATION THERAPY
     Dosage: 1 MILLIGRAM, ONCE A DAY
     Route: 048
     Dates: start: 20080109, end: 20080401
  3. CITALOPRAM FILM-COATED TABLETS 20MG [Suspect]
     Active Substance: CITALOPRAM HYDROBROMIDE
     Indication: DEPRESSION
     Dosage: 20 MILLIGRAM, ONCE A DAY
     Route: 065
     Dates: start: 20080109, end: 20080401
  4. CITALOPRAM FILM-COATED TABLETS 20MG [Suspect]
     Active Substance: CITALOPRAM HYDROBROMIDE
     Indication: ANXIETY
     Dosage: 20 MILLIGRAM, ONCE A DAY, TAKEN IN THE MORNING
     Route: 048
     Dates: start: 20080111, end: 20080401

REACTIONS (1)
  - Syncope [Recovered/Resolved]

NARRATIVE: CASE EVENT DATE: 20080401
